FAERS Safety Report 6234221-2 (Version None)
Quarter: 2009Q2

REPORT INFORMATION
  Report Type: 
  Country: None (occurrence: None)
  Receive Date: 20090618
  Receipt Date: 20090612
  Transmission Date: 20091009
  Serious: Yes (Hospitalization)
  Sender: FDA-Public Use
  Company Number: US-JNJFOC-20090604705

PATIENT
  Sex: Female

DRUGS (2)
  1. LEVAQUIN [Suspect]
     Indication: CELLULITIS
     Dosage: FOR FIVE DAYS
     Route: 048
  2. ANTIINFECTIVES [Concomitant]
     Indication: BACTERIAL INFECTION
     Route: 065

REACTIONS (5)
  - BALANCE DISORDER [None]
  - BURNING SENSATION [None]
  - DRY MOUTH [None]
  - PRURITUS GENERALISED [None]
  - TENDONITIS [None]
